FAERS Safety Report 24574704 (Version 3)
Quarter: 2025Q1

REPORT INFORMATION
  Report Type: Spontaneous
  Country: JP (occurrence: JP)
  Receive Date: 20241104
  Receipt Date: 20250320
  Transmission Date: 20250408
  Serious: Yes (Hospitalization)
  Sender: CATALYST PHARMA
  Company Number: JP-CATALYSTPHARMACEUTICALPARTNERS-JP-CATA-24-01246

PATIENT
  Sex: Female

DRUGS (35)
  1. FYCOMPA [Suspect]
     Active Substance: PERAMPANEL
     Indication: Partial seizures
     Dosage: 2.0 MILLIGRAM(S) (2 MILLIGRAM(S), 1 IN 1 DAY)
     Route: 048
     Dates: start: 20170427, end: 20170503
  2. FYCOMPA [Suspect]
     Active Substance: PERAMPANEL
     Dosage: 4.0 MILLIGRAM(S) (4 MILLIGRAM(S), 1 IN 1 DAY)
     Route: 048
     Dates: start: 20170504, end: 20170510
  3. FYCOMPA [Suspect]
     Active Substance: PERAMPANEL
     Dosage: 6.0 MILLIGRAM(S) (6 MILLIGRAM(S), 1 IN 1 DAY)
     Route: 048
     Dates: start: 20170511, end: 20170614
  4. FYCOMPA [Suspect]
     Active Substance: PERAMPANEL
     Dosage: 8.0 MILLIGRAM(S) (8 MILLIGRAM(S), 1 IN 1 DAY)
     Route: 048
     Dates: start: 20170615, end: 20170719
  5. FYCOMPA [Suspect]
     Active Substance: PERAMPANEL
     Dosage: 10.0 MILLIGRAM(S) (10 MILLIGRAM(S), 1 IN 1 DAY)
     Route: 048
     Dates: start: 20170720
  6. FLUCONAZOLE [Interacting]
     Active Substance: FLUCONAZOLE
     Indication: Product used for unknown indication
     Dosage: 100.0 MILLIGRAM(S) (100 MILLIGRAM(S), 1 IN 1 DAY)
     Route: 048
     Dates: start: 20240819, end: 20240906
  7. NOXAFIL [Suspect]
     Active Substance: POSACONAZOLE
     Indication: Product used for unknown indication
     Dosage: 300.0 MILLIGRAM(S) (300 MILLIGRAM(S), 1 IN 1 DAY)
     Route: 048
     Dates: start: 20221019, end: 20240814
  8. LAMICTAL [Suspect]
     Active Substance: LAMOTRIGINE
     Indication: Product used for unknown indication
     Dosage: 200.0 MILLIGRAM(S) (200 MILLIGRAM(S), 1 IN 1 DAY)
     Route: 048
  9. LEVETIRACETAM [Concomitant]
     Active Substance: LEVETIRACETAM
     Indication: Product used for unknown indication
     Dosage: 1000 MILLIGRAM(S) (500 MILLIGRAM(S), 1 IN 12 HOUR)
     Route: 048
  10. CALONAL [Concomitant]
     Active Substance: ACETAMINOPHEN
     Indication: Product used for unknown indication
     Dosage: 1200 MILLIGRAM(S) (400 MILLIGRAM(S), 1 IN 8 HOUR)
     Route: 048
     Dates: start: 20240820
  11. SULFAMETHOXAZOLE\TRIMETHOPRIM [Concomitant]
     Active Substance: SULFAMETHOXAZOLE\TRIMETHOPRIM
     Indication: Product used for unknown indication
     Route: 048
  12. SYMBICORT [Concomitant]
     Active Substance: BUDESONIDE\FORMOTEROL FUMARATE DIHYDRATE
     Indication: Product used for unknown indication
     Dosage: 4.0 DOSAGE FORM (2 DOSAGE FORM, 1 IN 12 HOUR)
     Route: 055
     Dates: start: 20240619
  13. RAMELTEON [Concomitant]
     Active Substance: RAMELTEON
     Indication: Product used for unknown indication
     Dosage: 8.0 MILLIGRAM(S) (8 MILLIGRAM(S), 1 IN 1 DAY)
     Route: 048
  14. DAYVIGO [Concomitant]
     Active Substance: LEMBOREXANT
     Indication: Product used for unknown indication
     Dosage: 2.5 MILLIGRAM(S) (2.5 MILLIGRAM(S), 1 IN 1 DAY)
     Route: 048
     Dates: start: 20240830
  15. QUETIAPINE [Concomitant]
     Active Substance: QUETIAPINE
     Indication: Product used for unknown indication
     Route: 048
     Dates: start: 20240825
  16. MAGNESIUM OXIDE [Concomitant]
     Active Substance: MAGNESIUM OXIDE
     Indication: Product used for unknown indication
     Route: 048
  17. SENNOSIDES [Concomitant]
     Active Substance: SENNOSIDES
     Indication: Product used for unknown indication
     Route: 048
     Dates: start: 20240823
  18. SINGULAIR [Concomitant]
     Active Substance: MONTELUKAST SODIUM
     Indication: Product used for unknown indication
     Route: 048
  19. ZOVIRAX [Concomitant]
     Active Substance: ACYCLOVIR
     Indication: Product used for unknown indication
     Route: 048
  20. PRECEDEX [Concomitant]
     Active Substance: DEXMEDETOMIDINE HYDROCHLORIDE
     Indication: Product used for unknown indication
     Route: 030
     Dates: start: 20240824, end: 20240826
  21. ACETAMINOPHEN [Concomitant]
     Active Substance: ACETAMINOPHEN
     Indication: Product used for unknown indication
     Route: 030
  22. HALOPERIDOL [Concomitant]
     Active Substance: HALOPERIDOL
     Indication: Product used for unknown indication
     Route: 030
     Dates: start: 20240826, end: 20240830
  23. OMEPRAZOLE [Concomitant]
     Active Substance: OMEPRAZOLE
     Indication: Product used for unknown indication
     Route: 030
  24. DEXAMETHASONE SODIUM PHOSPHATE [Concomitant]
     Active Substance: DEXAMETHASONE SODIUM PHOSPHATE
     Indication: Product used for unknown indication
     Route: 042
  25. AMINO ACIDS\DEXTROSE\ELECTROLYTES NOS\VITAMINS [Concomitant]
     Active Substance: AMINO ACIDS\DEXTROSE\ELECTROLYTES NOS\VITAMINS
     Indication: Product used for unknown indication
     Route: 042
  26. SODIUM CHLORIDE [Concomitant]
     Active Substance: SODIUM CHLORIDE
     Indication: Product used for unknown indication
     Route: 042
  27. SOLDEM 3A [Concomitant]
     Active Substance: CARBOHYDRATES\POTASSIUM CHLORIDE\SODIUM CHLORIDE\SODIUM LACTATE
     Indication: Product used for unknown indication
     Route: 042
  28. VEEN D [Concomitant]
     Active Substance: CALCIUM CHLORIDE\DEXTROSE\POTASSIUM CHLORIDE\SODIUM ACETATE\SODIUM CHLORIDE
     Indication: Product used for unknown indication
     Route: 042
  29. VEEN F [Concomitant]
     Indication: Product used for unknown indication
     Route: 042
  30. VEKLURY [Concomitant]
     Active Substance: REMDESIVIR
     Indication: Product used for unknown indication
     Route: 042
  31. VENILON [Concomitant]
     Active Substance: HUMAN IMMUNOGLOBULIN G
     Indication: Product used for unknown indication
     Route: 042
  32. HEPARIN SODIUM [Concomitant]
     Active Substance: HEPARIN SODIUM
     Indication: Product used for unknown indication
     Route: 058
  33. SODIUM PICOSULFATE [Concomitant]
     Active Substance: SODIUM PICOSULFATE
     Indication: Product used for unknown indication
     Dosage: 10-15 DROPS AT A TIME/DAY
     Route: 065
     Dates: start: 20240801
  34. SOYBEAN OIL [Concomitant]
     Active Substance: SOYBEAN OIL
     Indication: Product used for unknown indication
     Route: 030
  35. METOCLOPRAMIDE [Concomitant]
     Active Substance: METOCLOPRAMIDE
     Indication: Product used for unknown indication
     Route: 048
     Dates: start: 20240828

REACTIONS (10)
  - Anticonvulsant drug level increased [Recovered/Resolved]
  - Depressed level of consciousness [Recovering/Resolving]
  - Urinary incontinence [Recovering/Resolving]
  - COVID-19 pneumonia [Recovering/Resolving]
  - Delirium [Recovering/Resolving]
  - Agitation [Recovering/Resolving]
  - Aggression [Recovering/Resolving]
  - Fall [Recovering/Resolving]
  - Dizziness [Recovering/Resolving]
  - Drug interaction [Unknown]

NARRATIVE: CASE EVENT DATE: 20240819
